FAERS Safety Report 8883270 (Version 2)
Quarter: 2012Q4

REPORT INFORMATION
  Report Type: 
  Country: IT (occurrence: IT)
  Receive Date: 20121102
  Receipt Date: 20121112
  Transmission Date: 20130627
  Serious: Yes (Other)
  Sender: FDA-Public Use
  Company Number: IT-AMGEN-ITASP2012069591

PATIENT
  Age: 59 Year
  Sex: Female

DRUGS (3)
  1. ARANESP [Suspect]
     Indication: ANAEMIA
     Dosage: 500 mug, qmo
     Route: 042
  2. EPOETIN ALFA [Suspect]
     Dosage: 30000 IU, qwk
     Route: 042
     Dates: start: 20080101, end: 20081201
  3. DEPAKIN [Concomitant]

REACTIONS (2)
  - Anaemia [Not Recovered/Not Resolved]
  - Drug ineffective [Not Recovered/Not Resolved]
